FAERS Safety Report 15989069 (Version 1)
Quarter: 2019Q1

REPORT INFORMATION
  Report Type: Spontaneous
  Country: US (occurrence: US)
  Receive Date: 20190221
  Receipt Date: 20190221
  Transmission Date: 20190418
  Serious: Yes (Other)
  Sender: FDA-Public Use
  Company Number: US-BAYER-2019-029698

PATIENT
  Age: 30 Year
  Sex: Female

DRUGS (1)
  1. MIRENA [Suspect]
     Active Substance: LEVONORGESTREL
     Dosage: 20 MCG/24HR, CONT
     Route: 015
     Dates: start: 201402, end: 201604

REACTIONS (10)
  - Paraesthesia oral [None]
  - Vomiting [None]
  - Loss of consciousness [None]
  - Nausea [None]
  - Amnesia [None]
  - Phonophobia [None]
  - Confusional state [None]
  - Idiopathic intracranial hypertension [None]
  - Headache [None]
  - Photophobia [None]

NARRATIVE: CASE EVENT DATE: 201711
